FAERS Safety Report 6526831-X (Version None)
Quarter: 2010Q1

REPORT INFORMATION
  Report Type: 
  Country: None (occurrence: None)
  Receive Date: 20100105
  Receipt Date: 20091224
  Transmission Date: 20100710
  Serious: Yes (Hospitalization)
  Sender: FDA-Public Use
  Company Number: FR-ELI_LILLY_AND_COMPANY-FR200912005593

PATIENT
  Sex: Male
  Weight: 65 kg

DRUGS (3)
  1. CYMBALTA [Suspect]
     Dosage: 60 MG, DAILY (1/D)
     Route: 048
     Dates: start: 20090601, end: 20090919
  2. MEPRONIZINE [Concomitant]
     Dosage: UNK, UNKNOWN
     Route: 065
     Dates: start: 20090302, end: 20090919
  3. DEPAKOTE [Concomitant]
     Dosage: UNK, UNKNOWN
     Route: 065

REACTIONS (1)
  - DEPRESSION [None]
